FAERS Safety Report 26021347 (Version 2)
Quarter: 2025Q4

REPORT INFORMATION
  Report Type: Report from Study
  Country: CA (occurrence: CA)
  Receive Date: 20251110
  Receipt Date: 20251111
  Transmission Date: 20260118
  Serious: Yes (Other)
  Sender: JOHNSON AND JOHNSON
  Company Number: CA-JNJFOC-20251150768

PATIENT
  Age: 12 Year
  Sex: Male
  Weight: 27.9 kg

DRUGS (2)
  1. REMICADE [Suspect]
     Active Substance: INFLIXIMAB
     Indication: Crohn^s disease
     Dosage: DOSE: 300(UNSPECIFIED UNIT)
     Route: 041
  2. REMICADE [Suspect]
     Active Substance: INFLIXIMAB
     Dosage: DOSE: 300(UNSPECIFIED UNIT)
     Route: 041
     Dates: start: 20251003

REACTIONS (1)
  - Crohn^s disease [Unknown]
